FAERS Safety Report 8810393 (Version 1)
Quarter: 2012Q4

REPORT INFORMATION
  Report Type: 
  Country: US (occurrence: US)
  Receive Date: 20120926
  Receipt Date: 20120926
  Transmission Date: 20130627
  Serious: Yes (Disabling)
  Sender: FDA-Public Use
  Company Number: US-009507513-1209USA008471

PATIENT
  Age: 35 Year
  Sex: Female

DRUGS (2)
  1. SAPHRIS [Suspect]
     Indication: BIPOLAR DISORDER
     Dosage: 10 mg, qd
     Route: 060
  2. SAPHRIS [Suspect]
     Dosage: 5 mg, QD
     Route: 060

REACTIONS (4)
  - Nuchal rigidity [Recovering/Resolving]
  - Dystonia [Recovering/Resolving]
  - Underdose [Unknown]
  - Inappropriate schedule of drug administration [Unknown]
